FAERS Safety Report 10176817 (Version 3)
Quarter: 2015Q3

REPORT INFORMATION
  Report Type: Spontaneous
  Country: US (occurrence: US)
  Receive Date: 20140516
  Receipt Date: 20150729
  Transmission Date: 20151125
  Serious: Yes (Other)
  Sender: FDA-Public Use
  Company Number: US-BAYER-2014-069724

PATIENT
  Age: 89 Year
  Sex: Male
  Weight: 84 kg

DRUGS (3)
  1. BAYER LOW DOSE [Suspect]
     Active Substance: ASPIRIN
     Dosage: 1 DF, QD
     Route: 048
     Dates: start: 1984, end: 2011
  2. CALAN [VERAPAMIL HYDROCHLORIDE] [Concomitant]
  3. VITAMIN D [Concomitant]
     Active Substance: CHOLECALCIFEROL

REACTIONS (9)
  - Macular degeneration [Not Recovered/Not Resolved]
  - Retinal haemorrhage [Unknown]
  - Atrophy of globe [None]
  - Eye haemorrhage [Recovered/Resolved]
  - Retinal neovascularisation [Unknown]
  - Vision blurred [Not Recovered/Not Resolved]
  - Off label use [None]
  - Chorioretinal disorder [None]
  - Macular degeneration [Not Recovered/Not Resolved]

NARRATIVE: CASE EVENT DATE: 1984
